FAERS Safety Report 8646021 (Version 7)
Quarter: 2013Q3

REPORT INFORMATION
  Report Type: Spontaneous
  Country: US (occurrence: US)
  Receive Date: 20120702
  Receipt Date: 20130930
  Transmission Date: 20140515
  Serious: Yes (Hospitalization, Disabling, Other)
  Sender: FDA-Public Use
  Company Number: US-009507513-1206USA04642

PATIENT
  Sex: Female

DRUGS (6)
  1. FOSAMAX [Suspect]
     Indication: OSTEOPOROSIS
     Dosage: 70 MG, UNK
     Route: 048
  2. FOSAMAX [Suspect]
     Indication: OSTEOPENIA
  3. ACTONEL [Suspect]
     Indication: OSTEOPOROSIS
     Dosage: 150 MG, UNK
     Route: 048
     Dates: start: 20081119, end: 20091210
  4. ALENDRONATE SODIUM [Suspect]
     Dosage: 70 MG, UNK
  5. VITAMINS (UNSPECIFIED) [Concomitant]
     Indication: VITAMIN D DEFICIENCY
     Dosage: UNK
     Dates: start: 1998
  6. CALCIUM (UNSPECIFIED) [Concomitant]
     Indication: CALCIUM DEFICIENCY
     Dosage: UNK
     Dates: start: 1996

REACTIONS (39)
  - Femur fracture [Unknown]
  - Open reduction of fracture [Unknown]
  - Anaemia postoperative [Unknown]
  - Open reduction of fracture [Unknown]
  - Wound secretion [Recovered/Resolved]
  - Rotator cuff syndrome [Recovered/Resolved]
  - Osteoporosis [Not Recovered/Not Resolved]
  - Stress fracture [Not Recovered/Not Resolved]
  - Back disorder [Unknown]
  - Low turnover osteopathy [Not Recovered/Not Resolved]
  - Medical device removal [Unknown]
  - Carpal tunnel decompression [Unknown]
  - Tonsillectomy [Unknown]
  - Female sterilisation [Unknown]
  - Rheumatoid arthritis [Unknown]
  - Bone graft [Unknown]
  - Fracture nonunion [Unknown]
  - Bone graft [Unknown]
  - Bundle branch block right [Unknown]
  - Oedema peripheral [Recovering/Resolving]
  - Osteonecrosis of jaw [Unknown]
  - Back injury [Unknown]
  - Wrist fracture [Unknown]
  - Upper limb fracture [Unknown]
  - Pernicious anaemia [Unknown]
  - Fall [Unknown]
  - Coronary artery disease [Unknown]
  - Depression [Unknown]
  - Anxiety [Unknown]
  - Device malfunction [Unknown]
  - Osteoarthritis [Unknown]
  - Lumbar spinal stenosis [Unknown]
  - Radius fracture [Unknown]
  - Fall [Unknown]
  - Spinal osteoarthritis [Unknown]
  - Calcium deficiency [Unknown]
  - Vitamin D deficiency [Unknown]
  - Adverse event [Unknown]
  - Hospitalisation [Unknown]
